FAERS Safety Report 5939141-6 (Version None)
Quarter: 2008Q4

REPORT INFORMATION
  Report Type: 
  Country: None (occurrence: None)
  Receive Date: 20081103
  Receipt Date: 20081029
  Transmission Date: 20090506
  Serious: Yes (Hospitalization)
  Sender: FDA-Public Use
  Company Number: GB-WYE-G02469308

PATIENT
  Age: 49 Year
  Sex: Female

DRUGS (7)
  1. TAZOCIN [Suspect]
     Indication: NEUTROPENIA
     Dosage: 4.5 G (FREQUENCY UNKNOWN)
     Route: 042
     Dates: start: 20080829, end: 20080902
  2. LEVOTHYROXINE SODIUM [Concomitant]
     Indication: HYPOTHYROIDISM
     Route: 048
  3. VENLAFAXINE HCL [Concomitant]
     Indication: DEPRESSION
     Route: 048
  4. PREMARIN [Concomitant]
     Dosage: 0.625 MG (FREQUENCY UNKNOWN)
     Dates: end: 20080922
  5. RAMIPRIL [Concomitant]
     Indication: HYPERTENSION
     Route: 048
  6. AMLODIPINE [Concomitant]
     Route: 048
  7. OXYBUTYNIN [Concomitant]
     Indication: BLADDER DISORDER
     Route: 048

REACTIONS (4)
  - ABNORMAL BEHAVIOUR [None]
  - CONFUSIONAL STATE [None]
  - HALLUCINATION, AUDITORY [None]
  - PARANOIA [None]
